FAERS Safety Report 22229008 (Version 1)
Quarter: 2023Q2

REPORT INFORMATION
  Report Type: Spontaneous
  Country: US (occurrence: None)
  Receive Date: 20230418
  Receipt Date: 20230418
  Transmission Date: 20230722
  Serious: No
  Sender: FDA-Public Use
  Company Number: None

PATIENT
  Age: 63 Year
  Sex: Female
  Weight: 53.07 kg

DRUGS (15)
  1. CAPECITABINE [Suspect]
     Active Substance: CAPECITABINE
     Indication: Breast cancer female
     Dosage: FREQUENCY : TWICE A DAY;?
     Route: 048
  2. ACETAMINOPHEN [Concomitant]
     Active Substance: ACETAMINOPHEN
  3. ALPRAZOLAM [Concomitant]
     Active Substance: ALPRAZOLAM
  4. VITAMIN B COMPLEX [Concomitant]
     Active Substance: CYANOCOBALAMIN\DEXPANTHENOL\NIACINAMIDE\PYRIDOXINE HYDROCHLORIDE\RIBOFLAVIN 5^-PHOSPHATE SODIUM\THIA
  5. FOLIC ACID [Concomitant]
     Active Substance: FOLIC ACID
  6. FUROSEMIDE [Concomitant]
     Active Substance: FUROSEMIDE
  7. HYDROCORTISONE [Concomitant]
     Active Substance: HYDROCORTISONE
  8. KLOR-CON [Concomitant]
     Active Substance: POTASSIUM CHLORIDE
  9. LYRICA [Concomitant]
     Active Substance: PREGABALIN
  10. MAGNESIUM [Concomitant]
     Active Substance: MAGNESIUM
  11. PERCOCET [Concomitant]
     Active Substance: ACETAMINOPHEN\OXYCODONE HYDROCHLORIDE
  12. SILVER SULFADIAZINE [Concomitant]
     Active Substance: SILVER SULFADIAZINE
  13. VITAMIN B12 [Concomitant]
     Active Substance: CYANOCOBALAMIN
  14. VITAMIN D3 [Concomitant]
     Active Substance: CHOLECALCIFEROL
  15. XANAX [Concomitant]
     Active Substance: ALPRAZOLAM

REACTIONS (1)
  - Palmar-plantar erythrodysaesthesia syndrome [None]
